FAERS Safety Report 16822446 (Version 1)
Quarter: 2019Q3

REPORT INFORMATION
  Report Type: Spontaneous
  Country: US (occurrence: US)
  Receive Date: 20190726
  Receipt Date: 20190726
  Transmission Date: 20191005
  Serious: Yes (Hospitalization)
  Sender: FDA-Public Use
  Company Number: None

PATIENT
  Age: 91 Year
  Sex: Male

DRUGS (1)
  1. METOLAZONE. [Suspect]
     Active Substance: METOLAZONE
     Indication: CARDIAC FAILURE CONGESTIVE
     Dosage: ?          OTHER DOSE:2.5MG;OTHER FREQUENCY:UNKNOWN;?
     Route: 048
     Dates: start: 20190327, end: 20190426

REACTIONS (5)
  - Chronic kidney disease [None]
  - Fluid overload [None]
  - Cardiac failure acute [None]
  - Hypophagia [None]
  - Hyponatraemia [None]

NARRATIVE: CASE EVENT DATE: 20190424
